FAERS Safety Report 23978274 (Version 2)
Quarter: 2025Q3

REPORT INFORMATION
  Report Type: Report from Study
  Country: ZA (occurrence: ZA)
  Receive Date: 20240614
  Receipt Date: 20250805
  Transmission Date: 20251020
  Serious: Yes (Other)
  Sender: ABBVIE
  Company Number: ZA-ABBOTT-2024A-1382628

PATIENT
  Age: 72 Year
  Sex: Female

DRUGS (28)
  1. CREON [Suspect]
     Active Substance: PANCRELIPASE AMYLASE\PANCRELIPASE LIPASE\PANCRELIPASE PROTEASE
     Indication: Product used for unknown indication
     Dosage: 300 MG TAKE ONE CAPSULE THREE TIMES A DAY,  CREON 25000
     Route: 048
  2. CREON [Suspect]
     Active Substance: PANCRELIPASE AMYLASE\PANCRELIPASE LIPASE\PANCRELIPASE PROTEASE
     Indication: Product used for unknown indication
     Dosage: 150 MG TAKE TWO CAPSULES THREE TIMES A DAY, CREON 10000
     Route: 048
  3. ATROVENT HFA [Concomitant]
     Active Substance: IPRATROPIUM BROMIDE
     Indication: Asthma
     Route: 055
  4. FLORINEF ACETATE [Concomitant]
     Active Substance: FLUDROCORTISONE ACETATE
     Indication: Addison^s disease
     Dosage: 0.1 MG TAKE ONE TABLET ONCE A DAY
     Route: 048
  5. Dis chem paracetamol [Concomitant]
     Indication: Product used for unknown indication
     Dosage: 500 MG TAKE TWO TABLETS THREE TIMES A DAY FOR 7DAYS
     Route: 048
  6. ACETAMINOPHEN\TRAMADOL [Concomitant]
     Active Substance: ACETAMINOPHEN\TRAMADOL
     Indication: Pain
     Dosage: TAKE ONE TABLET TWICE A DAY
     Route: 048
  7. DORMONOCT [Concomitant]
     Active Substance: LOPRAZOLAM
     Indication: Insomnia
     Dosage: 2 MG TAKE ONE TABLET AT NIGHT
     Route: 048
  8. OLANZAPINE [Concomitant]
     Active Substance: OLANZAPINE
     Indication: Depression
     Dosage: 5 MG TAKE ONE TABLET ONCE A DAY
     Route: 048
  9. ALBUTEROL SULFATE [Concomitant]
     Active Substance: ALBUTEROL SULFATE
     Indication: Asthma
     Route: 048
  10. NEUROBION [Concomitant]
     Active Substance: CYANOCOBALAMIN\PYRIDOXINE\THIAMINE
     Indication: Product used for unknown indication
     Route: 048
  11. METFORMIN HYDROCHLORIDE [Concomitant]
     Active Substance: METFORMIN HYDROCHLORIDE
     Indication: Diabetes mellitus
     Dosage: 500 MG TAKE ONE TABLET ONCE A DAY
     Route: 048
  12. GELATIN [Concomitant]
     Active Substance: GELATIN
     Indication: Ulcer
     Dosage: 500 MG TAKE ONE CAPSULE THREE TIMES ADAY
     Route: 048
  13. TRELEGY ELLIPTA [Concomitant]
     Active Substance: FLUTICASONE FUROATE\UMECLIDINIUM BROMIDE\VILANTEROL TRIFENATATE
     Indication: Asthma
     Route: 055
  14. Pro banthine [Concomitant]
     Indication: Product used for unknown indication
     Dosage: 15 MG TAKE ONE TABLET AT NIGHT
     Route: 048
  15. LANSOPRAZOLE [Concomitant]
     Active Substance: LANSOPRAZOLE
     Indication: Ulcer
     Dosage: 30 MG DIRECTIONS TAKE ONE CAPSULE IN THE MORNING
     Route: 048
  16. Lp299v [Concomitant]
     Indication: Product used for unknown indication
     Dosage: TAKE ONE CAPSULE ONCE A DAY FOR 7DAYS
     Route: 048
  17. FOLIC ACID [Concomitant]
     Active Substance: FOLIC ACID
     Indication: Asthenia
     Dosage: 5 MG TAKE ONE TABLET ONCE A DAY
     Route: 048
  18. LEVOTHYROXINE [Concomitant]
     Active Substance: LEVOTHYROXINE
     Indication: Thyroid disorder
     Dosage: 75 MCG TAKE ONE TABLET IN THE MORNING, ?ELTROXIN NEW  FORMULATION
     Route: 048
  19. VOLTAREN [Concomitant]
     Active Substance: DICLOFENAC SODIUM
     Indication: Pain
     Dosage: 50 MG TAKE ONE TABLET THREE TIMES A DAY FOR PAIN, ?VOLTAREN GT
     Route: 048
  20. CODEINE PHOSPHATE [Concomitant]
     Active Substance: CODEINE PHOSPHATE
     Indication: Product used for unknown indication
     Dosage: 30 MG TAKE ONE TABLET THREE TIMES A DAY
     Route: 048
  21. Venteze [Concomitant]
     Indication: Asthma
     Route: 048
  22. Zinplex [Concomitant]
     Indication: Product used for unknown indication
     Dosage: 50 MG TAKE ONE TABLET THREE TIMES A DAY
     Route: 048
  23. Lipogen [Concomitant]
     Indication: Blood cholesterol abnormal
     Dosage: 20 MG TAKE ONE TABLET AT NIGHT
     Route: 048
  24. METOCLOPRAMIDE HYDROCHLORIDE [Concomitant]
     Active Substance: METOCLOPRAMIDE HYDROCHLORIDE
     Indication: Product used for unknown indication
     Route: 048
  25. Cal c vita [Concomitant]
     Indication: Ulcer
     Route: 048
  26. Neucon [Concomitant]
     Indication: Product used for unknown indication
     Dosage: 18 MG TAKE ONE TABLET IN THE MORNINGS
     Route: 048
  27. CITRIC ACID MONOHYDRATE\SODIUM BICARBONATE\SODIUM CITRATE\TARTARIC ACI [Concomitant]
     Active Substance: CITRIC ACID MONOHYDRATE\SODIUM BICARBONATE\SODIUM CITRATE\TARTARIC ACID
     Indication: Product used for unknown indication
     Dosage: TAKE 8G TWICE A DAY FOR 7DAYS
     Route: 048
  28. Ciprobay [Concomitant]
     Indication: Product used for unknown indication
     Dosage: 500 MG TAKE ONE TABLET TWICE A DAY
     Route: 048

REACTIONS (1)
  - Neoplasm malignant [Unknown]
